FAERS Safety Report 13059315 (Version 2)
Quarter: 2016Q4

REPORT INFORMATION
  Report Type: Spontaneous
  Country: US (occurrence: US)
  Receive Date: 20161223
  Receipt Date: 20161223
  Transmission Date: 20170207
  Serious: No
  Sender: FDA-Public Use
  Company Number: US-BAUSCH-BL-2016-017670

PATIENT
  Age: 8 Year
  Sex: Male

DRUGS (2)
  1. XENAZINE [Suspect]
     Active Substance: TETRABENAZINE
     Indication: NEURODEGENERATIVE DISORDER
     Route: 048
     Dates: start: 201201, end: 201607
  2. TETRABENAZINE. [Suspect]
     Active Substance: TETRABENAZINE
     Indication: NEURODEGENERATIVE DISORDER
     Route: 048
     Dates: start: 201607

REACTIONS (4)
  - Condition aggravated [Unknown]
  - Off label use [Unknown]
  - Neurodegenerative disorder [Unknown]
  - Drug ineffective for unapproved indication [Unknown]

NARRATIVE: CASE EVENT DATE: 201201
